FAERS Safety Report 6628211-5 (Version None)
Quarter: 2010Q1

REPORT INFORMATION
  Report Type: 
  Country: None (occurrence: None)
  Receive Date: 20100311
  Receipt Date: 20100106
  Transmission Date: 20100710
  Serious: No
  Sender: FDA-Public Use
  Company Number: A0837958A

PATIENT
  Age: 55 Year
  Sex: Female

DRUGS (3)
  1. NICORETTE [Suspect]
  2. NICORETTE [Suspect]
  3. NICOTINE POLACRILEX [Suspect]

REACTIONS (4)
  - DRUG ADMINISTRATION ERROR [None]
  - DRUG INEFFECTIVE [None]
  - DYSPEPSIA [None]
  - NICOTINE DEPENDENCE [None]
